FAERS Safety Report 6559473-0 (Version None)
Quarter: 2010Q1

REPORT INFORMATION
  Report Type: 
  Country: None (occurrence: None)
  Receive Date: 20100129
  Receipt Date: 20090908
  Transmission Date: 20100710
  Serious: No
  Sender: FDA-Public Use
  Company Number: US-ABBOTT-09P-163-0595851-00

PATIENT
  Sex: Female
  Weight: 72.64 kg

DRUGS (1)
  1. HUMIRA [Suspect]
     Indication: RHEUMATOID ARTHRITIS
     Dates: start: 20090513

REACTIONS (6)
  - ASTHENIA [None]
  - DRUG DOSE OMISSION [None]
  - FLUSHING [None]
  - HEADACHE [None]
  - HORMONE LEVEL ABNORMAL [None]
  - NIGHT SWEATS [None]
